FAERS Safety Report 19948927 (Version 7)
Quarter: 2023Q2

REPORT INFORMATION
  Report Type: Report from Study
  Country: DE (occurrence: DE)
  Receive Date: 20211013
  Receipt Date: 20230406
  Transmission Date: 20230721
  Serious: Yes (Hospitalization)
  Sender: FDA-Public Use
  Company Number: DE-NOVARTISPH-NVSC2021DE055655

PATIENT
  Age: 6 Year
  Sex: Male

DRUGS (16)
  1. ILARIS [Suspect]
     Active Substance: CANAKINUMAB
     Indication: Familial mediterranean fever
     Dosage: 74 MG, EVERY 4 WEEKS
     Route: 058
     Dates: start: 20200826
  2. ILARIS [Suspect]
     Active Substance: CANAKINUMAB
     Dosage: 55 MG
     Route: 058
     Dates: end: 20210113
  3. ILARIS [Suspect]
     Active Substance: CANAKINUMAB
     Dosage: 74 MG
     Route: 058
     Dates: end: 20210210
  4. ILARIS [Suspect]
     Active Substance: CANAKINUMAB
     Dosage: 36 MG
     Route: 058
     Dates: end: 20200923
  5. ILARIS [Suspect]
     Active Substance: CANAKINUMAB
     Dosage: 76 MG
     Route: 058
     Dates: end: 20211117
  6. ILARIS [Suspect]
     Active Substance: CANAKINUMAB
     Dosage: 85 MG
     Route: 058
  7. ILARIS [Suspect]
     Active Substance: CANAKINUMAB
     Dosage: UNK
     Route: 058
     Dates: start: 20220824
  8. ILARIS [Suspect]
     Active Substance: CANAKINUMAB
     Dosage: 80 MG
     Route: 058
     Dates: start: 20220921
  9. ILARIS [Suspect]
     Active Substance: CANAKINUMAB
     Dosage: 80 MG
     Route: 058
     Dates: start: 20221116
  10. COLCHICINE [Concomitant]
     Active Substance: COLCHICINE
     Indication: Familial mediterranean fever
     Dosage: 0.5 MG, QD
     Route: 048
     Dates: start: 20170928
  11. COLCHICINE [Concomitant]
     Active Substance: COLCHICINE
     Dosage: 0.5 UG, QD
     Route: 048
     Dates: end: 20220705
  12. COLCHICINE [Concomitant]
     Active Substance: COLCHICINE
     Dosage: 0.5 MG, QD
     Route: 048
     Dates: end: 20220705
  13. COLCHICINE [Concomitant]
     Active Substance: COLCHICINE
     Dosage: 0.5 MG, QD
     Route: 048
     Dates: end: 20220705
  14. COLCHICINE [Concomitant]
     Active Substance: COLCHICINE
     Dosage: 0.5 MG, QD
     Route: 048
     Dates: start: 20210928, end: 20220705
  15. COLCHICINE [Concomitant]
     Active Substance: COLCHICINE
     Dosage: 0.4 MG, TID
     Route: 048
     Dates: start: 20220705, end: 20220920
  16. COLCHICINE [Concomitant]
     Active Substance: COLCHICINE
     Dosage: 0.5 MG, TID
     Route: 048
     Dates: start: 20220920

REACTIONS (27)
  - Tachycardia [Recovered/Resolved]
  - Palpitations [Recovered/Resolved]
  - Hyperhidrosis [Recovered/Resolved]
  - Feeling hot [Recovered/Resolved]
  - Condition aggravated [Recovered/Resolved]
  - Condition aggravated [Recovered/Resolved]
  - Weight increased [Recovered/Resolved]
  - Familial mediterranean fever [Recovered/Resolved]
  - Arthralgia [Recovered/Resolved]
  - Abdominal pain [Recovered/Resolved]
  - Pyrexia [Recovered/Resolved]
  - Rash [Recovered/Resolved]
  - Nausea [Recovered/Resolved]
  - Vomiting [Recovered/Resolved]
  - Familial mediterranean fever [Recovered/Resolved]
  - Arthralgia [Recovered/Resolved]
  - Abdominal pain [Recovered/Resolved]
  - Rash [Recovered/Resolved]
  - Fatigue [Recovered/Resolved]
  - Conjunctivitis [Recovered/Resolved]
  - Conjunctivitis [Recovered/Resolved]
  - Astigmatism [Recovered/Resolved]
  - Coronavirus infection [Recovered/Resolved]
  - Streptococcal infection [Recovered/Resolved]
  - Therapeutic response decreased [Recovered/Resolved]
  - Therapeutic response decreased [Recovered/Resolved]
  - Therapeutic response decreased [Recovered/Resolved]

NARRATIVE: CASE EVENT DATE: 20200923
